FAERS Safety Report 22720987 (Version 2)
Quarter: 2024Q3

REPORT INFORMATION
  Report Type: Spontaneous
  Country: US (occurrence: US)
  Receive Date: 20230719
  Receipt Date: 20240723
  Transmission Date: 20241016
  Serious: No
  Sender: OTSUKA
  Company Number: US-OTSUKA-2022_047049

PATIENT
  Age: 12 Year
  Sex: Female

DRUGS (3)
  1. REXULTI [Suspect]
     Active Substance: BREXPIPRAZOLE
     Indication: Attention deficit hyperactivity disorder
     Dosage: 2 MG
     Route: 065
     Dates: start: 2022
  2. REXULTI [Suspect]
     Active Substance: BREXPIPRAZOLE
     Indication: Autism spectrum disorder
  3. REXULTI [Suspect]
     Active Substance: BREXPIPRAZOLE
     Indication: Disruptive mood dysregulation disorder

REACTIONS (3)
  - Product use issue [Unknown]
  - Product dose omission issue [Unknown]
  - Product use in unapproved indication [Unknown]
